FAERS Safety Report 4924783-7 (Version None)
Quarter: 2006Q1

REPORT INFORMATION
  Report Type: 
  Country: None (occurrence: None)
  Receive Date: 20060222
  Receipt Date: 20060208
  Transmission Date: 20060701
  Serious: No
  Sender: FDA-Public Use
  Company Number: 06H-163-0305119-00

PATIENT
  Sex: Male

DRUGS (4)
  1. DIPHENHYDRAMINE HCL [Suspect]
     Indication: SEDATION
     Dosage: 50 MG, INTRAVENOUS
     Route: 042
  2. MIDAZOLAM HYDROCHLORIDE [Suspect]
     Indication: SEDATIVE THERAPY
     Dosage: INTRAVENOUS
     Route: 042
  3. MEPERIDINE HCL [Suspect]
     Indication: SEDATIVE THERAPY
     Dosage: INTRAVENOUS
     Route: 042
  4. OXYGEN (OXYGEN) [Concomitant]

REACTIONS (2)
  - BRADYCARDIA [None]
  - HYPOTENSION [None]
